FAERS Safety Report 12183299 (Version 1)
Quarter: 2016Q1

REPORT INFORMATION
  Report Type: Spontaneous
  Country: RS (occurrence: RS)
  Receive Date: 20160316
  Receipt Date: 20160316
  Transmission Date: 20160526
  Serious: Yes (Hospitalization)
  Sender: FDA-Public Use
  Company Number: RS-B.I. PHARMACEUTICALS,INC./RIDGEFIELD-2016-BI-15113RS

PATIENT
  Age: 38 Year
  Sex: Female

DRUGS (5)
  1. DEXASON [Concomitant]
     Indication: PRODUCT USED FOR UNKNOWN INDICATION
     Route: 042
     Dates: start: 20160209, end: 20160209
  2. BISOPROLOL [Concomitant]
     Active Substance: BISOPROLOL
     Indication: HYPERTENSION
     Dosage: 5 MG
     Route: 048
     Dates: start: 20150701
  3. MOVALIS [Suspect]
     Active Substance: MELOXICAM
     Indication: BACK PAIN
     Dosage: 15 MG
     Route: 042
     Dates: start: 20160209, end: 20160209
  4. BEDOXIN [Suspect]
     Active Substance: PYRIDOXINE
     Indication: BACK PAIN
     Dosage: 50 MG
     Route: 042
     Dates: start: 20160209, end: 20160209
  5. RAWEL [Concomitant]
     Indication: HYPERTENSION
     Route: 065

REACTIONS (2)
  - Loss of consciousness [Recovered/Resolved]
  - Feeling hot [Unknown]

NARRATIVE: CASE EVENT DATE: 20160209
